FAERS Safety Report 13697632 (Version 2)
Quarter: 2017Q3

REPORT INFORMATION
  Report Type: Report from Study
  Country: IT (occurrence: IT)
  Receive Date: 20170628
  Receipt Date: 20170728
  Transmission Date: 20171127
  Serious: Yes (Hospitalization)
  Sender: FDA-Public Use
  Company Number: IT-TAIHO ONCOLOGY INC-JPTT170795

PATIENT
  Age: 42 Year
  Sex: Male
  Weight: 73 kg

DRUGS (6)
  1. NALOXONE [Concomitant]
     Active Substance: NALOXONE
     Indication: ABDOMINAL PAIN
     Dosage: 5 MG, BID
     Route: 048
     Dates: start: 20170215
  2. PANTORC [Concomitant]
     Active Substance: PANTOPRAZOLE SODIUM
     Indication: GASTRITIS PROPHYLAXIS
     Dosage: 20 MG, QD
     Route: 048
     Dates: start: 20170127
  3. LONSURF [Suspect]
     Active Substance: TIPIRACIL HYDROCHLORIDE\TRIFLURIDINE
     Dosage: 65 MG (35 MG/M2) BID ON DAYS 1-5 AND 8-12 OF EACH 28-DAY CYCLE
     Route: 048
     Dates: start: 20170325, end: 20170502
  4. LONSURF [Suspect]
     Active Substance: TIPIRACIL HYDROCHLORIDE\TRIFLURIDINE
     Dosage: 65 MG (35 MG/M2) BID ON DAYS 1-5 AND 8-12 OF EACH 28-DAY CYCLE
     Route: 048
     Dates: start: 20170529, end: 20170607
  5. DELTACORTENE [Concomitant]
     Active Substance: PREDNISONE
     Indication: SUPPORTIVE CARE
     Dosage: 12 MG, QD
     Route: 048
     Dates: start: 20170210
  6. LONSURF [Suspect]
     Active Substance: TIPIRACIL HYDROCHLORIDE\TRIFLURIDINE
     Indication: COLORECTAL CANCER METASTATIC
     Dosage: 65 MG (35 MG/M2) BID ON DAYS 1-5 AND 8-12 OF EACH 28-DAY CYCLE
     Route: 048
     Dates: start: 20170211, end: 20170222

REACTIONS (1)
  - Constipation [Recovered/Resolved]

NARRATIVE: CASE EVENT DATE: 20170605
